FAERS Safety Report 9511108 (Version 2)
Quarter: 2013Q3

REPORT INFORMATION
  Report Type: Spontaneous
  Country: US (occurrence: None)
  Receive Date: 20130905
  Receipt Date: 20130912
  Transmission Date: 20140515
  Serious: No
  Sender: FDA-Public Use
  Company Number: NXG-13-006

PATIENT
  Sex: Male

DRUGS (1)
  1. FIORICET [Suspect]
     Indication: MIGRAINE

REACTIONS (1)
  - Somnolence [None]
